FAERS Safety Report 10927261 (Version 2)
Quarter: 2015Q2

REPORT INFORMATION
  Report Type: Spontaneous
  Country: US (occurrence: US)
  Receive Date: 20150318
  Receipt Date: 20150625
  Transmission Date: 20150821
  Serious: Yes (Hospitalization, Other)
  Sender: FDA-Public Use
  Company Number: US-GLAXOSMITHKLINE-US2015033772

PATIENT
  Age: 74 Year
  Sex: Female

DRUGS (6)
  1. VITAMIN D [Concomitant]
     Active Substance: CHOLECALCIFEROL
  2. SORIATANE [Suspect]
     Active Substance: ACITRETIN
     Indication: KERATOSIS FOLLICULAR
     Dosage: 25 MG
     Route: 048
  3. LISINOPRIL. [Concomitant]
     Active Substance: LISINOPRIL
  4. SORIATANE [Suspect]
     Active Substance: ACITRETIN
     Dosage: 25 MG
     Route: 048
  5. ASPIRIN (BABY) [Concomitant]
     Active Substance: ASPIRIN
  6. ROSUVASTATIN [Concomitant]
     Active Substance: ROSUVASTATIN

REACTIONS (9)
  - Polyp [Unknown]
  - Blindness unilateral [Unknown]
  - Colon operation [Unknown]
  - Product use issue [Not Recovered/Not Resolved]
  - Drug dose omission [Unknown]
  - Eye disorder [Unknown]
  - Intentional product use issue [Not Recovered/Not Resolved]
  - Nodule [Not Recovered/Not Resolved]
  - Colon neoplasm [Unknown]

NARRATIVE: CASE EVENT DATE: 201502
